FAERS Safety Report 4442221-8 (Version None)
Quarter: 2004Q3

REPORT INFORMATION
  Report Type: 
  Country: None (occurrence: None)
  Receive Date: 20040903
  Receipt Date: 20040719
  Transmission Date: 20050211
  Serious: Yes (Other)
  Sender: FDA-Public Use
  Company Number: 2004UW14975

PATIENT
  Age: 58 Year
  Sex: Female
  Weight: 90.7194 kg

DRUGS (6)
  1. CRESTOR [Suspect]
     Indication: BLOOD CHOLESTEROL INCREASED
  2. PREMARIN [Concomitant]
  3. CLARITIN [Concomitant]
  4. NASACORT [Concomitant]
  5. MULTIVITAMIN [Concomitant]
  6. ACCUPRIL [Concomitant]

REACTIONS (5)
  - BACK PAIN [None]
  - CONSTIPATION [None]
  - EPISTAXIS [None]
  - GINGIVAL BLEEDING [None]
  - NAUSEA [None]
